FAERS Safety Report 25286238 (Version 1)
Quarter: 2025Q2

REPORT INFORMATION
  Report Type: Spontaneous
  Country: GB (occurrence: GB)
  Receive Date: 20250509
  Receipt Date: 20250509
  Transmission Date: 20250717
  Serious: Yes (Other)
  Sender: AMGEN
  Company Number: GB-AMGEN-GBRSP2024201820

PATIENT
  Age: 5 Year
  Sex: Male

DRUGS (3)
  1. PROLIA [Suspect]
     Active Substance: DENOSUMAB
     Indication: Bone giant cell tumour benign
     Dosage: 1.7 MILLIGRAM/KILOGRAM, Q4WK, FOR 13 MONTHS
     Route: 065
  2. PROLIA [Suspect]
     Active Substance: DENOSUMAB
     Route: 065
  3. PROLIA [Suspect]
     Active Substance: DENOSUMAB
     Route: 065

REACTIONS (6)
  - Acute kidney injury [Unknown]
  - Hypercalcaemia [Unknown]
  - Fall [Unknown]
  - Clavicle fracture [Unknown]
  - Drug effective for unapproved indication [Unknown]
  - Off label use [Unknown]
